FAERS Safety Report 11380979 (Version 1)
Quarter: 2015Q3

REPORT INFORMATION
  Report Type: Spontaneous
  Country: US (occurrence: None)
  Receive Date: 20150813
  Receipt Date: 20150813
  Transmission Date: 20151125
  Serious: Yes (Hospitalization, Other)
  Sender: FDA-Public Use
  Company Number: None

PATIENT
  Age: 63 Year
  Sex: Male
  Weight: 70.4 kg

DRUGS (2)
  1. HEPARIN [Suspect]
     Active Substance: HEPARIN SODIUM
     Indication: ATRIAL FIBRILLATION
     Dates: start: 20150701, end: 20150707
  2. WARFARIN [Suspect]
     Active Substance: WARFARIN
     Indication: ATRIAL FIBRILLATION
     Dates: start: 20150704, end: 20150706

REACTIONS (4)
  - Activated partial thromboplastin time prolonged [None]
  - Haemoglobin decreased [None]
  - Retroperitoneal haemorrhage [None]
  - Fall [None]

NARRATIVE: CASE EVENT DATE: 20150706
